FAERS Safety Report 19792412 (Version 1)
Quarter: 2021Q3

REPORT INFORMATION
  Report Type: Spontaneous
  Country: UA (occurrence: UA)
  Receive Date: 20210906
  Receipt Date: 20210906
  Transmission Date: 20211014
  Serious: Yes (Death, Hospitalization, Other)
  Sender: FDA-Public Use
  Company Number: UA-SA-2021SA276742

PATIENT
  Age: 73 Year
  Sex: Male
  Weight: 91 kg

DRUGS (10)
  1. CARVEDILOL. [Concomitant]
     Active Substance: CARVEDILOL
     Indication: PREMEDICATION
     Dosage: 3125 MG, Q12H
  2. CARDIOMAGNYL [Concomitant]
     Active Substance: ASPIRIN\MAGNESIUM HYDROXIDE
     Indication: PREMEDICATION
     Dosage: 75 MG, QD
  3. CO?PRENESSA [Concomitant]
     Active Substance: INDAPAMIDE\PERINDOPRIL ERBUMINE
     Indication: PREMEDICATION
     Dosage: UNK UNK, QD (2,0/0,125 MG A DAY
  4. ROXERA [Concomitant]
     Active Substance: ROSUVASTATIN CALCIUM
     Indication: PREMEDICATION
     Dosage: 40 MG, QD
  5. MAGNE B6 [Concomitant]
     Active Substance: MAGNESIUM\PYRIDOXINE
     Indication: PREMEDICATION
     Dosage: UNK
  6. QUAMATEL [Concomitant]
     Active Substance: FAMOTIDINE
     Dosage: 40 MG, QD
  7. PLAVIX [Suspect]
     Active Substance: CLOPIDOGREL BISULFATE
     Indication: PREMEDICATION
     Dosage: 600 MG
     Route: 065
  8. ACETYLSALICYLIC ACID [Suspect]
     Active Substance: ASPIRIN
     Dosage: 100 MG
     Route: 065
  9. SYDNOPHARM [Concomitant]
     Indication: PREMEDICATION
     Dosage: 2 MG THREE TIMES A DAY
  10. XARELTO [Concomitant]
     Active Substance: RIVAROXABAN
     Indication: PREMEDICATION
     Dosage: 20 MG A DAY (WITHDRAWN 3 DAYS BEFORE THE PERCUTANEOUS CORONAROGRAPHY INTERVENTION)

REACTIONS (4)
  - Angina pectoris [Fatal]
  - Haemorrhagic stroke [Fatal]
  - Death [Fatal]
  - Stent placement [Unknown]

NARRATIVE: CASE EVENT DATE: 20210614
